FAERS Safety Report 7834140-1 (Version None)
Quarter: 2011Q4

REPORT INFORMATION
  Report Type: 
  Country: None (occurrence: None)
  Receive Date: 20111024
  Receipt Date: 20111012
  Transmission Date: 20120403
  Serious: Yes (Other)
  Sender: FDA-Public Use
  Company Number: PHHY2011BE90986

PATIENT
  Sex: Female

DRUGS (6)
  1. BONIVA [Concomitant]
     Indication: OSTEOPOROSIS
  2. CALCIUM CARBONATE [Concomitant]
     Indication: OSTEOPOROSIS
  3. ALPRAZOLAM [Concomitant]
     Indication: STRESS
  4. LAMISIL [Suspect]
     Indication: FUNGAL INFECTION
     Dosage: 250 MG, QD
     Route: 048
     Dates: start: 20110112, end: 20111007
  5. FEMOSTON CONTI [Concomitant]
     Indication: HORMONE REPLACEMENT THERAPY
  6. PERINDOPRIL ARGININE [Concomitant]
     Indication: HYPERTENSION
     Dosage: 5 MG, QD

REACTIONS (10)
  - SYNCOPE [None]
  - GAIT DISTURBANCE [None]
  - STRESS [None]
  - VESTIBULAR DISORDER [None]
  - BLOOD PRESSURE INCREASED [None]
  - ANXIETY [None]
  - HEADACHE [None]
  - FALL [None]
  - MALAISE [None]
  - DIZZINESS [None]
